FAERS Safety Report 14705828 (Version 7)
Quarter: 2018Q2

REPORT INFORMATION
  Report Type: Spontaneous
  Country: CA (occurrence: CA)
  Receive Date: 20180402
  Receipt Date: 20180611
  Transmission Date: 20180711
  Serious: Yes (Hospitalization, Other)
  Sender: FDA-Public Use
  Company Number: CA-CELLTRION INC.-2017CA017660

PATIENT

DRUGS (14)
  1. INFLECTRA [Suspect]
     Active Substance: INFLIXIMAB-DYYB
     Dosage: 800 MG, CYCLIC (EVERY 7 WEEKS)
     Route: 042
     Dates: start: 20170801, end: 20171221
  2. INFLECTRA [Suspect]
     Active Substance: INFLIXIMAB-DYYB
     Dosage: 800 MG, CYCLIC (EVERY 4 WEEKS)
     Route: 042
     Dates: start: 20180124
  3. INFLECTRA [Suspect]
     Active Substance: INFLIXIMAB-DYYB
     Dosage: 800 MG, CYCLIC (EVERY 4 WEEKS)
     Route: 042
     Dates: start: 20180322
  4. HYDROMORPHONE HYDROCHLORIDE. [Suspect]
     Active Substance: HYDROMORPHONE HYDROCHLORIDE
     Indication: PRODUCT USED FOR UNKNOWN INDICATION
     Dosage: UNK
     Route: 042
     Dates: start: 201710
  5. TYLENOL [Concomitant]
     Active Substance: ACETAMINOPHEN
     Dosage: UNK
  6. INFLECTRA [Suspect]
     Active Substance: INFLIXIMAB-DYYB
     Indication: CROHN^S DISEASE
     Dosage: 800 MG, CYCLIC (Q 0, 2, 6 WEEKS, THEN EVERY 8 WEEKS)
     Route: 042
     Dates: start: 20170801, end: 2017
  7. INFLECTRA [Suspect]
     Active Substance: INFLIXIMAB-DYYB
     Dosage: 800 MG, CYCLIC (Q 0, 2, 6 WEEKS, THEN EVERY 8 WEEKS)
     Route: 042
     Dates: start: 20171106
  8. INFLECTRA [Suspect]
     Active Substance: INFLIXIMAB-DYYB
     Dosage: 800 MG, CYCLIC (Q 0, 2, 6 WEEKS, THEN EVERY 8 WEEKS)UNK
     Route: 042
     Dates: start: 20171106
  9. TRAMADOL. [Concomitant]
     Active Substance: TRAMADOL
     Indication: PAIN
     Dosage: THREE TIMES DAILY
     Route: 048
     Dates: start: 201710
  10. INFLECTRA [Suspect]
     Active Substance: INFLIXIMAB-DYYB
     Dosage: 800 MG, CYCLIC (EVERY 4 WEEKS)
     Route: 042
     Dates: start: 20180430
  11. INFLECTRA [Suspect]
     Active Substance: INFLIXIMAB-DYYB
     Dosage: 800 MG, CYCLIC (Q 0, 2, 6 WEEKS, THEN EVERY 8 WEEKS)
     Route: 042
     Dates: start: 20171221
  12. INFLECTRA [Suspect]
     Active Substance: INFLIXIMAB-DYYB
     Dosage: 800 MG, CYCLIC (EVERY 4 WEEKS)
     Route: 042
     Dates: start: 20180220
  13. IMURAN [Concomitant]
     Active Substance: AZATHIOPRINE
     Dosage: 60 MG, DAILY
  14. BUDESONIDE. [Concomitant]
     Active Substance: BUDESONIDE
     Dosage: 9 MG

REACTIONS (18)
  - Constipation [Unknown]
  - Incision site complication [Unknown]
  - Vomiting [Unknown]
  - Fatigue [Unknown]
  - Nausea [Unknown]
  - Dyspnoea [Not Recovered/Not Resolved]
  - Drug effect incomplete [Recovering/Resolving]
  - Gastroenteritis viral [Unknown]
  - Condition aggravated [Unknown]
  - Nasopharyngitis [Not Recovered/Not Resolved]
  - Gastrointestinal disorder [Unknown]
  - Product use issue [Unknown]
  - Incision site pain [Not Recovered/Not Resolved]
  - Malaise [Unknown]
  - Headache [Unknown]
  - Umbilical hernia [Unknown]
  - Anal incontinence [Unknown]
  - Diarrhoea [Unknown]

NARRATIVE: CASE EVENT DATE: 2017
